FAERS Safety Report 6175396-3 (Version None)
Quarter: 2009Q2

REPORT INFORMATION
  Report Type: 
  Country: None (occurrence: None)
  Receive Date: 20090429
  Receipt Date: 20090415
  Transmission Date: 20091009
  Serious: Yes (Other)
  Sender: FDA-Public Use
  Company Number: 2009BM000096

PATIENT
  Age: 14 Year
  Sex: Female
  Weight: 77.7 kg

DRUGS (5)
  1. KUVAN [Suspect]
     Indication: PHENYLKETONURIA
     Dosage: 1500 MG; QD; PO
     Route: 048
     Dates: start: 20081001
  2. STRATTERA [Concomitant]
  3. CONCERTA [Concomitant]
  4. LAMICTAL [Concomitant]
  5. RISPERDAL [Concomitant]

REACTIONS (11)
  - BLOOD AMINO ACID LEVEL INCREASED [None]
  - COMMUNICATION DISORDER [None]
  - DYSPHEMIA [None]
  - HEADACHE [None]
  - MEMORY IMPAIRMENT [None]
  - MENTAL IMPAIRMENT [None]
  - MOOD ALTERED [None]
  - MOTOR DYSFUNCTION [None]
  - SUICIDAL BEHAVIOUR [None]
  - UNEVALUABLE EVENT [None]
  - WEIGHT INCREASED [None]
